FAERS Safety Report 7811528-6 (Version None)
Quarter: 2011Q4

REPORT INFORMATION
  Report Type: 
  Country: None (occurrence: None)
  Receive Date: 20111013
  Receipt Date: 20111013
  Transmission Date: 20120403
  Serious: Yes (Death)
  Sender: FDA-Public Use
  Company Number: None

PATIENT
  Age: 54 Year
  Sex: Male
  Weight: 115 kg

DRUGS (5)
  1. PRADAXA [Suspect]
     Indication: ATRIAL FIBRILLATION
     Dosage: 150 MG
     Route: 048
  2. EZETIMIBE [Concomitant]
  3. HEPARIN [Concomitant]
  4. OSELTAMIRIR [Concomitant]
  5. SOTALOL HCL [Concomitant]

REACTIONS (7)
  - RESPIRATORY ARREST [None]
  - HAEMORRHAGE INTRACRANIAL [None]
  - RESPIRATORY DISORDER [None]
  - BRAIN DEATH [None]
  - PNEUMONIA [None]
  - CONVULSION [None]
  - INFLUENZA [None]
